FAERS Safety Report 9266115 (Version 2)
Quarter: 2013Q2

REPORT INFORMATION
  Report Type: Spontaneous
  Country: CY (occurrence: CY)
  Receive Date: 20130502
  Receipt Date: 20130506
  Transmission Date: 20140414
  Serious: Yes (Other)
  Sender: FDA-Public Use
  Company Number: CY-ABBOTT-13X-041-1080536-00

PATIENT
  Sex: Male

DRUGS (5)
  1. LIPIDIL [Suspect]
     Indication: HYPERTRIGLYCERIDAEMIA
     Route: 048
  2. LIPIDIL [Suspect]
     Dates: start: 20121005, end: 20130426
  3. STATIN [Concomitant]
     Indication: HYPERCHOLESTEROLAEMIA
     Route: 048
  4. OMACOR [Concomitant]
     Indication: HYPERTRIGLYCERIDAEMIA
  5. OMACOR [Concomitant]

REACTIONS (3)
  - Drug prescribing error [Unknown]
  - Overdose [Recovered/Resolved]
  - Incorrect dose administered [Unknown]
